FAERS Safety Report 21154636 (Version 1)
Quarter: 2022Q3

REPORT INFORMATION
  Report Type: Spontaneous
  Country: US (occurrence: None)
  Receive Date: 20220729
  Receipt Date: 20220729
  Transmission Date: 20221027
  Serious: Yes (Other)
  Sender: FDA-Public Use
  Company Number: None

PATIENT
  Sex: Male

DRUGS (13)
  1. ENBREL [Suspect]
     Active Substance: ETANERCEPT
     Indication: Rheumatoid arthritis
     Dosage: INJECT 1 SYRINGE UNDER THE SKIN (SUBCUTAENOUS INJECTION) ONCE A WEEK
     Route: 058
     Dates: start: 20220621
  2. ENBREL [Suspect]
     Active Substance: ETANERCEPT
     Dosage: OTHER QUANTITY : 1 SYRINE;?FREQUENCY : WEEKLY;?
     Route: 058
  3. APAP/CODEINE [Concomitant]
  4. BRIMONIDINE SOL [Concomitant]
  5. CLOBETASOL [Concomitant]
     Active Substance: CLOBETASOL
  6. DIAZEPAM [Concomitant]
     Active Substance: DIAZEPAM
  7. DORZOL/TIMOL [Concomitant]
  8. HUMIRA [Concomitant]
     Active Substance: ADALIMUMAB
  9. LOSARTAN POTASSIUM [Concomitant]
     Active Substance: LOSARTAN POTASSIUM
  10. METOPROL SUC [Concomitant]
  11. OMEPRAZOLE [Concomitant]
     Active Substance: OMEPRAZOLE
  12. ROSUVASTATIN [Concomitant]
     Active Substance: ROSUVASTATIN
  13. TIMOLOL MAL [Concomitant]

REACTIONS (5)
  - Injection site bruising [None]
  - Injection site pain [None]
  - Surgery [None]
  - Therapy interrupted [None]
  - Therapeutic product effect incomplete [None]
